FAERS Safety Report 13577643 (Version 2)
Quarter: 2017Q2

REPORT INFORMATION
  Report Type: Spontaneous
  Country: US (occurrence: US)
  Receive Date: 20170524
  Receipt Date: 20170628
  Transmission Date: 20170830
  Serious: Yes (Hospitalization, Other)
  Sender: FDA-Public Use
  Company Number: US-BAUSCH-BL-2017-016982

PATIENT
  Age: 76 Year
  Sex: Female

DRUGS (6)
  1. FLUOROURACIL. [Suspect]
     Active Substance: FLUOROURACIL
     Indication: COLON CANCER METASTATIC
     Dosage: EVERY CYCLE
     Route: 065
  2. BEVACIZUMAB [Suspect]
     Active Substance: BEVACIZUMAB
     Indication: ACUTE MYELOID LEUKAEMIA (IN REMISSION)
     Dosage: EVERY CYCLE
     Route: 065
  3. FOLINIC ACID [Suspect]
     Active Substance: LEUCOVORIN
     Indication: COLON CANCER METASTATIC
     Dosage: EVERY CYCLE
     Route: 065
  4. BEVACIZUMAB [Suspect]
     Active Substance: BEVACIZUMAB
     Indication: COLON CANCER METASTATIC
     Dosage: EVERY CYCLE
     Route: 065
  5. FOLINIC ACID [Suspect]
     Active Substance: LEUCOVORIN
     Indication: ACUTE MYELOID LEUKAEMIA (IN REMISSION)
     Dosage: EVERY CYCLE
     Route: 065
  6. FLUOROURACIL. [Suspect]
     Active Substance: FLUOROURACIL
     Indication: ACUTE MYELOID LEUKAEMIA (IN REMISSION)
     Dosage: EVERY CYCLE
     Route: 065

REACTIONS (2)
  - Infectious colitis [Recovering/Resolving]
  - Tongue discolouration [Recovering/Resolving]
